FAERS Safety Report 15676404 (Version 1)
Quarter: 2018Q4

REPORT INFORMATION
  Report Type: Report from Study
  Country: US (occurrence: US)
  Receive Date: 20181130
  Receipt Date: 20181130
  Transmission Date: 20190205
  Serious: Yes (Other)
  Sender: FDA-Public Use
  Company Number: US-SAKK-2018SA168780AA

PATIENT
  Age: 68 Year
  Sex: Female

DRUGS (2)
  1. INSULIN GLARGINE [Suspect]
     Active Substance: INSULIN GLARGINE
     Indication: DIABETES MELLITUS
     Dosage: UNK
     Route: 058
  2. INSULIN GLARGINE [Suspect]
     Active Substance: INSULIN GLARGINE
     Dosage: 70 DF, QD
     Route: 058

REACTIONS (4)
  - Renal failure [Not Recovered/Not Resolved]
  - Therapeutic response unexpected [Unknown]
  - Myopia [Not Recovered/Not Resolved]
  - Product storage error [Unknown]
